FAERS Safety Report 5724432-4 (Version None)
Quarter: 2008Q2

REPORT INFORMATION
  Report Type: 
  Country: None (occurrence: None)
  Receive Date: 20080428
  Receipt Date: 20080417
  Transmission Date: 20081010
  Serious: Yes (Hospitalization, Other)
  Sender: FDA-Public Use
  Company Number: PHMT2008CA00493

PATIENT
  Age: 18 Year
  Sex: Male

DRUGS (2)
  1. LAMISIL [Suspect]
     Indication: WOUND INFECTION FUNGAL
     Dosage: QD, TOPICAL
     Route: 061
     Dates: start: 20080121, end: 20080122
  2. SINGULAIR [Concomitant]

REACTIONS (2)
  - INFECTION [None]
  - THERAPEUTIC PRODUCT CONTAMINATION [None]
